FAERS Safety Report 4545172-3 (Version None)
Quarter: 2005Q1

REPORT INFORMATION
  Report Type: 
  Country: None (occurrence: None)
  Receive Date: 20041222
  Receipt Date: 20040910
  Transmission Date: 20050727
  Serious: Yes (Hospitalization, Other)
  Sender: FDA-Public Use
  Company Number: USA040977940

PATIENT
  Age: 55 Year
  Sex: Female
  Weight: 98 kg

DRUGS (1)
  1. HUMALOG [Suspect]
     Indication: DIABETES MELLITUS
     Dosage: 10 U DAY
     Dates: start: 20010101

REACTIONS (6)
  - DIFFICULTY IN WALKING [None]
  - EYE HAEMORRHAGE [None]
  - MACULAR OEDEMA [None]
  - RENAL VEIN OCCLUSION [None]
  - VISUAL ACUITY REDUCED [None]
  - WEIGHT INCREASED [None]
